FAERS Safety Report 11829845 (Version 2)
Quarter: 2015Q4

REPORT INFORMATION
  Report Type: Spontaneous
  Country: JP (occurrence: JP)
  Receive Date: 20151212
  Receipt Date: 20151222
  Transmission Date: 20160305
  Serious: Yes (Death)
  Sender: FDA-Public Use
  Company Number: JP-ASTRAZENECA-2015SF24442

PATIENT
  Age: 64 Year
  Sex: Female

DRUGS (5)
  1. TRASTUZUMAB [Suspect]
     Active Substance: TRASTUZUMAB
     Indication: BREAST CANCER
     Route: 041
     Dates: start: 201503, end: 201503
  2. DOCETAXEL. [Suspect]
     Active Substance: DOCETAXEL
     Indication: BREAST CANCER
     Route: 041
     Dates: start: 201503, end: 201503
  3. MEROPENEM. [Suspect]
     Active Substance: MEROPENEM
     Indication: FEBRILE NEUTROPENIA
     Route: 041
  4. RECOMODULIN [Suspect]
     Active Substance: THROMBOMODULIN ALFA
     Route: 041
  5. PERJETA [Suspect]
     Active Substance: PERTUZUMAB
     Indication: BREAST CANCER
     Route: 041
     Dates: start: 201503, end: 201503

REACTIONS (8)
  - Respiratory failure [Fatal]
  - Roseolovirus test positive [Fatal]
  - Cytomegalovirus enterocolitis [Fatal]
  - Immune reconstitution inflammatory syndrome [Fatal]
  - Skin erosion [Fatal]
  - Stevens-Johnson syndrome [Fatal]
  - Erythema [Fatal]
  - Cytomegalovirus infection [Fatal]
